FAERS Safety Report 5772061-9 (Version None)
Quarter: 2008Q2

REPORT INFORMATION
  Report Type: 
  Country: None (occurrence: None)
  Receive Date: 20080612
  Receipt Date: 20080612
  Transmission Date: 20081010
  Serious: No
  Sender: FDA-Public Use
  Company Number: None

PATIENT
  Age: 87 Year
  Sex: Female

DRUGS (4)
  1. FERRLECIT [Suspect]
     Indication: ANAEMIA
     Dosage: 125MG ONCE DAILY IV
     Route: 042
     Dates: start: 20080606, end: 20080606
  2. FERRLECIT [Suspect]
     Indication: FATIGUE
     Dosage: 125MG ONCE DAILY IV
     Route: 042
     Dates: start: 20080606, end: 20080606
  3. FERRLECIT [Suspect]
     Indication: RENAL FAILURE CHRONIC
     Dosage: 125MG ONCE DAILY IV
     Route: 042
     Dates: start: 20080606, end: 20080606
  4. 0.9% NORMAL SALINE FLUSH [Concomitant]

REACTIONS (4)
  - ABDOMINAL PAIN [None]
  - DIARRHOEA [None]
  - NAUSEA [None]
  - NO REACTION ON PREVIOUS EXPOSURE TO DRUG [None]
